FAERS Safety Report 20897120 (Version 2)
Quarter: 2022Q2

REPORT INFORMATION
  Report Type: Spontaneous
  Country: ES (occurrence: ES)
  Receive Date: 20220531
  Receipt Date: 20220608
  Transmission Date: 20220721
  Serious: Yes (Other)
  Sender: FDA-Public Use
  Company Number: ES-FERRINGPH-2022FE01952

PATIENT
  Sex: Male

DRUGS (8)
  1. MESALAMINE [Suspect]
     Active Substance: MESALAMINE
     Indication: Colitis ulcerative
     Dosage: 4.8 G, DAILY
     Route: 048
     Dates: start: 20171211
  2. MESALAMINE [Suspect]
     Active Substance: MESALAMINE
     Indication: Eosinophilic colitis
  3. MESALAMINE [Suspect]
     Active Substance: MESALAMINE
     Indication: Colitis ulcerative
     Dosage: DOSE WAS INCREASED
     Route: 054
     Dates: start: 20211126
  4. MESALAMINE [Suspect]
     Active Substance: MESALAMINE
     Indication: Eosinophilic colitis
     Dosage: DOSE WAS INCREASED
     Route: 054
     Dates: start: 202011, end: 20211126
  5. MESALAMINE [Suspect]
     Active Substance: MESALAMINE
     Dosage: 1 G, DAILY
     Route: 054
     Dates: start: 20180917, end: 202011
  6. BECLOMETHASONE [Concomitant]
     Active Substance: BECLOMETHASONE
     Indication: Eosinophilic colitis
     Dosage: UNK
     Dates: start: 20160911
  7. BECLOMETHASONE [Concomitant]
     Active Substance: BECLOMETHASONE
     Indication: Colitis ulcerative
  8. METOCLOPRAMIDE [Concomitant]
     Active Substance: METOCLOPRAMIDE
     Dosage: UNK, QD
     Dates: start: 2017

REACTIONS (3)
  - Colitis ulcerative [Recovered/Resolved]
  - Iron deficiency [Unknown]
  - Off label use [Unknown]

NARRATIVE: CASE EVENT DATE: 20200121
